FAERS Safety Report 25118680 (Version 1)
Quarter: 2025Q1

REPORT INFORMATION
  Report Type: Spontaneous
  Country: CN (occurrence: CN)
  Receive Date: 20250325
  Receipt Date: 20250325
  Transmission Date: 20250408
  Serious: Yes (Other)
  Sender: BAYER HEALTHCARE PHARMACEUTICALS INC.
  Company Number: CN-BAYER-2025A040320

PATIENT
  Age: 79 Year
  Sex: Male
  Weight: 61 kg

DRUGS (1)
  1. ULTRAVIST [Suspect]
     Active Substance: IOPROMIDE
     Indication: Angiogram
     Route: 042
     Dates: start: 20250321, end: 20250321

REACTIONS (5)
  - Blood pressure increased [Recovered/Resolved]
  - Tachypnoea [Recovering/Resolving]
  - Pyrexia [Recovered/Resolved]
  - Chills [None]
  - Heart rate increased [None]

NARRATIVE: CASE EVENT DATE: 20250321
